FAERS Safety Report 4448758-X (Version None)
Quarter: 2004Q3

REPORT INFORMATION
  Report Type: 
  Country: None (occurrence: None)
  Receive Date: 20040909
  Receipt Date: 20040831
  Transmission Date: 20050211
  Serious: Yes (Death, Other)
  Sender: FDA-Public Use
  Company Number: 2004-08-1951

PATIENT
  Age: 63 Year
  Sex: Male

DRUGS (1)
  1. INTRON A [Suspect]
     Indication: METASTATIC RENAL CELL CARCINOMA

REACTIONS (3)
  - COMPLETED SUICIDE [None]
  - MENTAL DISORDER [None]
  - SUDDEN DEATH [None]
